FAERS Safety Report 6679715-0 (Version None)
Quarter: 2010Q2

REPORT INFORMATION
  Report Type: 
  Country: None (occurrence: None)
  Receive Date: 20100413
  Receipt Date: 20100413
  Transmission Date: 20101027
  Serious: Yes (Hospitalization)
  Sender: FDA-Public Use
  Company Number: FR-BAYER-200943038GPV

PATIENT
  Age: 74 Year
  Sex: Male

DRUGS (10)
  1. NEXAVAR [Suspect]
     Indication: METASTATIC RENAL CELL CARCINOMA
     Dosage: UNIT DOSE: 200 MG
     Route: 048
     Dates: start: 20070401
  2. NEORECORMON [Concomitant]
  3. ALDACTONE [Concomitant]
     Dosage: HALF DOSAGE FORM IN THE MORNING
  4. DIFFU K [Concomitant]
     Dosage: 4/ DAY
  5. AMIODARONE HCL [Concomitant]
     Dosage: 2 TABLETS 5 DAYS OUT OF 7
  6. KARDEGIC [Concomitant]
     Dosage: 160
  7. AMLODIPINE [Concomitant]
     Dosage: UNIT DOSE: 10 MG
  8. NITROGLYCERIN [Concomitant]
     Dosage: 10
  9. CRESTOR [Concomitant]
     Dosage: 10
  10. TARDIFERRON [Concomitant]
     Dosage: 80 - 3/DAY

REACTIONS (3)
  - ANAEMIA [None]
  - HYPOVITAMINOSIS [None]
  - THROMBOCYTOPENIA [None]
